FAERS Safety Report 19186137 (Version 2)
Quarter: 2021Q2

REPORT INFORMATION
  Report Type: Spontaneous
  Country: AT (occurrence: AT)
  Receive Date: 20210427
  Receipt Date: 20210513
  Transmission Date: 20210717
  Serious: Yes (Hospitalization, Disabling)
  Sender: FDA-Public Use
  Company Number: AT-ABBVIE-21K-009-3874624-00

PATIENT
  Sex: Female
  Weight: 80 kg

DRUGS (7)
  1. OLEOVIT [Concomitant]
     Indication: PRODUCT USED FOR UNKNOWN INDICATION
  2. HUMIRA [Suspect]
     Active Substance: ADALIMUMAB
     Indication: GASTROINTESTINAL DISORDER
     Route: 058
     Dates: start: 2015
  3. HUMIRA [Suspect]
     Active Substance: ADALIMUMAB
     Indication: CROHN^S DISEASE
  4. FOLSAN [Concomitant]
     Active Substance: FOLIC ACID
     Indication: PRODUCT USED FOR UNKNOWN INDICATION
  5. ERYCYTOL [Concomitant]
     Indication: PRODUCT USED FOR UNKNOWN INDICATION
  6. MUTAFLOR [Concomitant]
     Active Substance: ESCHERICHIA COLI
     Indication: PRODUCT USED FOR UNKNOWN INDICATION
  7. OPTIFIBRE [Concomitant]
     Indication: PRODUCT USED FOR UNKNOWN INDICATION

REACTIONS (4)
  - Road traffic accident [Not Recovered/Not Resolved]
  - Tendon rupture [Not Recovered/Not Resolved]
  - Limb injury [Unknown]
  - Disease risk factor [Not Recovered/Not Resolved]

NARRATIVE: CASE EVENT DATE: 2020
